FAERS Safety Report 7894334-6 (Version None)
Quarter: 2011Q4

REPORT INFORMATION
  Report Type: 
  Country: None (occurrence: None)
  Receive Date: 20111104
  Receipt Date: 20111026
  Transmission Date: 20120403
  Serious: Yes (Hospitalization, Disabling)
  Sender: FDA-Public Use
  Company Number: JP-MERCK-1110USA01306

PATIENT
  Age: 84 Year
  Sex: Male

DRUGS (16)
  1. TRANDOLAPRIL [Concomitant]
     Route: 065
     Dates: start: 20110515
  2. ALDACTONE [Concomitant]
     Route: 065
     Dates: start: 20110512
  3. ALLOPURINOL [Concomitant]
     Route: 065
     Dates: end: 20110811
  4. LANSOPRAZOLE [Concomitant]
     Route: 065
  5. ZOLPIDEM [Concomitant]
     Route: 065
  6. PLAVIX [Concomitant]
     Route: 065
     Dates: start: 20110508, end: 20110101
  7. PERINDOPRIL ERBUMINE [Concomitant]
     Route: 065
  8. TENORMIN [Concomitant]
     Route: 065
  9. JANUVIA [Suspect]
     Indication: TYPE 2 DIABETES MELLITUS
     Route: 048
     Dates: start: 20110521, end: 20110811
  10. ASPIRIN [Concomitant]
     Route: 065
     Dates: start: 20110506, end: 20110809
  11. NATEGLINIDE [Concomitant]
     Indication: BLOOD GLUCOSE
     Route: 065
     Dates: start: 20110509
  12. BASEN OD [Concomitant]
     Indication: BLOOD GLUCOSE
     Route: 065
     Dates: start: 20110509
  13. SIGMART [Concomitant]
     Route: 065
     Dates: start: 20110510
  14. METOPROLOL TARTRATE [Concomitant]
     Route: 065
     Dates: start: 20110512
  15. LASIX [Concomitant]
     Route: 065
     Dates: start: 20110512
  16. ANPLAG [Concomitant]
     Route: 065
     Dates: start: 20110101, end: 20110808

REACTIONS (1)
  - INTERSTITIAL LUNG DISEASE [None]
